FAERS Safety Report 9725672 (Version 2)
Quarter: 2013Q4

REPORT INFORMATION
  Report Type: Spontaneous
  Country: JP (occurrence: JP)
  Receive Date: 20131203
  Receipt Date: 20131203
  Transmission Date: 20140711
  Serious: Yes (Other)
  Sender: FDA-Public Use
  Company Number: JP-009507513-2012SP025760

PATIENT
  Age: 82 Year
  Sex: Male
  Weight: 50 kg

DRUGS (1)
  1. NASONEX [Suspect]
     Indication: RHINITIS ALLERGIC
     Dosage: 50 MICROGRAM, QD
     Route: 045
     Dates: start: 20120426, end: 20120507

REACTIONS (3)
  - Angioedema [Recovered/Resolved]
  - Cough [Recovering/Resolving]
  - Rhinorrhoea [Recovering/Resolving]
